FAERS Safety Report 8796668 (Version 1)
Quarter: 2012Q4

REPORT INFORMATION
  Report Type: 
  Country: US (occurrence: US)
  Receive Date: 20120919
  Receipt Date: 20120919
  Transmission Date: 20130627
  Serious: Yes (Hospitalization, Disabling, Other)
  Sender: FDA-Public Use
  Company Number: US-009507513-1107USA03281

PATIENT

DRUGS (3)
  1. FOSAMAX [Suspect]
     Indication: OSTEOPOROSIS
     Dosage: 70 mg, QW
     Route: 048
     Dates: start: 2000, end: 20080610
  2. FOSAMAX [Suspect]
     Indication: OSTEOPOROSIS
     Dosage: 70 mg, QW
     Route: 048
     Dates: start: 200802, end: 200806
  3. NEXIUM [Concomitant]
     Indication: GASTROOESOPHAGEAL REFLUX DISEASE
     Dates: start: 1995

REACTIONS (69)
  - Osteonecrosis [Unknown]
  - Fracture nonunion [Unknown]
  - Femur fracture [Not Recovered/Not Resolved]
  - Low turnover osteopathy [Not Recovered/Not Resolved]
  - Blood cholesterol increased [Unknown]
  - Vitamin D deficiency [Unknown]
  - Intervertebral disc degeneration [Not Recovered/Not Resolved]
  - Device failure [Unknown]
  - Sciatica [Unknown]
  - Fall [Unknown]
  - Joint effusion [Unknown]
  - Ligament sprain [Unknown]
  - Pain in extremity [Unknown]
  - Groin pain [Unknown]
  - Arthralgia [Not Recovered/Not Resolved]
  - Fall [Unknown]
  - Epicondylitis [Recovered/Resolved]
  - Bursitis [Unknown]
  - Nausea [Unknown]
  - Confusional state [Unknown]
  - Adverse drug reaction [Unknown]
  - Fall [Unknown]
  - Aortic dilatation [Unknown]
  - Blood calcium increased [Unknown]
  - Blood parathyroid hormone increased [Unknown]
  - Thyroid disorder [Unknown]
  - Aortic aneurysm [Not Recovered/Not Resolved]
  - Fracture nonunion [Unknown]
  - Pain in extremity [Unknown]
  - Spinal osteoarthritis [Unknown]
  - Musculoskeletal pain [Unknown]
  - Red blood cell sedimentation rate increased [Unknown]
  - Myositis [Unknown]
  - Tendonitis [Unknown]
  - Renal failure chronic [Unknown]
  - Alopecia areata [Unknown]
  - Lichen planus [Unknown]
  - Anaemia [Unknown]
  - Hiatus hernia [Unknown]
  - Rash [Unknown]
  - Urticaria [Unknown]
  - Cardiac murmur [Unknown]
  - Hypercalcaemia [Recovering/Resolving]
  - Spinal osteoarthritis [Unknown]
  - Hypergammaglobulinaemia benign monoclonal [Unknown]
  - Myalgia [Unknown]
  - Pain in extremity [Unknown]
  - Parathyroid tumour benign [Unknown]
  - Polymyalgia rheumatica [Unknown]
  - Hyperparathyroidism [Unknown]
  - Balance disorder [Unknown]
  - Upper-airway cough syndrome [Unknown]
  - Herpes zoster [Unknown]
  - Vision blurred [Unknown]
  - Rotator cuff syndrome [Unknown]
  - Abdominal distension [Not Recovered/Not Resolved]
  - Adverse drug reaction [Unknown]
  - Haematuria [Recovered/Resolved]
  - Cataract [Unknown]
  - Haemorrhagic anaemia [Unknown]
  - Mental status changes [Unknown]
  - Adverse drug reaction [Unknown]
  - Arteriosclerosis [Unknown]
  - Pain [Unknown]
  - Oedema [Unknown]
  - Bone marrow transplant [Unknown]
  - Intramedullary rod insertion [Not Recovered/Not Resolved]
  - Thyroidectomy [Unknown]
  - Intramedullary rod insertion [Unknown]
